FAERS Safety Report 24085933 (Version 1)
Quarter: 2024Q3

REPORT INFORMATION
  Report Type: Spontaneous
  Country: MX (occurrence: MX)
  Receive Date: 20240712
  Receipt Date: 20240712
  Transmission Date: 20241017
  Serious: Yes (Hospitalization, Other)
  Sender: ELI LILLY AND CO
  Company Number: MX-ELI_LILLY_AND_COMPANY-MX202407003043

PATIENT
  Age: 73 Year
  Sex: Female

DRUGS (1)
  1. HUMALOG [Suspect]
     Active Substance: INSULIN LISPRO
     Indication: Diabetes mellitus
     Dosage: UNK UNK, UNKNOWN
     Route: 065

REACTIONS (3)
  - Cardiac failure [Unknown]
  - Gait inability [Unknown]
  - Fall [Unknown]
